FAERS Safety Report 8960086 (Version 3)
Quarter: 2013Q1

REPORT INFORMATION
  Report Type: Spontaneous
  Country: CA (occurrence: CA)
  Receive Date: 20121211
  Receipt Date: 20130123
  Transmission Date: 20140127
  Serious: Yes (Hospitalization)
  Sender: FDA-Public Use
  Company Number: CA-GLAXOSMITHKLINE-A1004121A

PATIENT
  Age: 57 None
  Sex: Female

DRUGS (3)
  1. VOTRIENT [Suspect]
     Indication: SARCOMA
     Dosage: 800MG PER DAY
     Route: 048
     Dates: start: 20121017
  2. MORPHINE [Suspect]
     Indication: PRODUCT USED FOR UNKNOWN INDICATION
     Dosage: .25MG UNKNOWN
     Route: 065
  3. EXEMESTANE [Concomitant]

REACTIONS (13)
  - Infection [Unknown]
  - Vomiting [Unknown]
  - Nausea [Unknown]
  - Glossodynia [Unknown]
  - Eating disorder [Unknown]
  - Swelling [Not Recovered/Not Resolved]
  - Erythema [Unknown]
  - Pain [Unknown]
  - Feeling hot [Unknown]
  - Nasopharyngitis [Not Recovered/Not Resolved]
  - Dry throat [Not Recovered/Not Resolved]
  - Cough [Not Recovered/Not Resolved]
  - Throat irritation [Not Recovered/Not Resolved]
